FAERS Safety Report 16909045 (Version 1)
Quarter: 2019Q4

REPORT INFORMATION
  Report Type: Spontaneous
  Country: US (occurrence: US)
  Receive Date: 20190820
  Receipt Date: 20190820
  Transmission Date: 20200122
  Serious: Yes (Hospitalization)
  Sender: FDA-Public Use
  Company Number: None

PATIENT
  Age: 42 Year
  Sex: Male
  Weight: 74.62 kg

DRUGS (1)
  1. GEMCITABINE. [Suspect]
     Active Substance: GEMCITABINE

REACTIONS (5)
  - Hypophagia [None]
  - Nausea [None]
  - Vomiting [None]
  - Abdominal pain [None]
  - Chills [None]

NARRATIVE: CASE EVENT DATE: 20190809
